FAERS Safety Report 4694649-9 (Version None)
Quarter: 2005Q2

REPORT INFORMATION
  Report Type: 
  Country: None (occurrence: None)
  Receive Date: 20050620
  Receipt Date: 20050610
  Transmission Date: 20051028
  Serious: Yes (Other)
  Sender: FDA-Public Use
  Company Number: PHNR2005AU00985

PATIENT
  Sex: Female

DRUGS (1)
  1. SYNTOCINON [Suspect]
     Indication: LABOUR INDUCTION
     Dosage: 10 IU AND 20 IU
     Dates: start: 20050609, end: 20050610

REACTIONS (2)
  - CAESAREAN SECTION [None]
  - DRUG INEFFECTIVE [None]
